FAERS Safety Report 15532579 (Version 1)
Quarter: 2018Q4

REPORT INFORMATION
  Report Type: Spontaneous
  Country: DE (occurrence: DE)
  Receive Date: 20181019
  Receipt Date: 20181019
  Transmission Date: 20190205
  Serious: Yes (Life-Threatening, Hospitalization, Other)
  Sender: FDA-Public Use
  Company Number: DE-GLAXOSMITHKLINE-DE2016200632

PATIENT
  Age: 68 Year
  Sex: Female

DRUGS (11)
  1. RANIBIZUMAB. [Suspect]
     Active Substance: RANIBIZUMAB
     Dosage: 10 MG/ML, UNK
     Route: 031
     Dates: start: 20160607
  2. VALSARTAN. [Concomitant]
     Active Substance: VALSARTAN
     Indication: HYPERTENSION
     Dosage: 160 MG, QD (1-0-0)
     Route: 065
     Dates: start: 20160526
  3. DILTIAZEM. [Concomitant]
     Active Substance: DILTIAZEM
     Indication: HYPERTENSION
     Dosage: 180 MG, UNK
     Route: 048
     Dates: start: 1990
  4. HCT [Concomitant]
     Active Substance: HYDROCHLOROTHIAZIDE
     Indication: HYPERTENSION
     Dosage: 12.5 MG, QD
     Route: 065
     Dates: start: 20160526
  5. RANIBIZUMAB. [Suspect]
     Active Substance: RANIBIZUMAB
     Dosage: 10 MG/ML, UNK
     Route: 031
     Dates: start: 20160427, end: 20160427
  6. DOXAZOSIN [Concomitant]
     Active Substance: DOXAZOSIN\DOXAZOSIN MESYLATE
     Indication: HYPERTENSION
     Dosage: 1 MG, QD
     Route: 065
     Dates: start: 20160526
  7. AMLODIPINE [Concomitant]
     Active Substance: AMLODIPINE BESYLATE
     Indication: HYPERTENSION
     Dosage: 140 MG, QD
     Route: 065
     Dates: start: 20160526
  8. VALSARTAN COMP [Concomitant]
     Active Substance: HYDROCHLOROTHIAZIDE\VALSARTAN
     Indication: HYPERTENSION
     Dosage: 160/12.5 MG
     Route: 048
     Dates: start: 1990
  9. CARVEDILOL. [Concomitant]
     Active Substance: CARVEDILOL
     Indication: HYPERTENSION
     Dosage: 12.5 MG, QD (1-0-0)
     Route: 048
     Dates: start: 1990
  10. DICLOFENAC [Suspect]
     Active Substance: DICLOFENAC
     Indication: PAIN
     Dosage: 75 MG, UNK
     Route: 048
     Dates: start: 2015
  11. RANIBIZUMAB. [Suspect]
     Active Substance: RANIBIZUMAB
     Indication: NEOVASCULAR AGE-RELATED MACULAR DEGENERATION
     Dosage: 10 MG/ML, UNK
     Route: 031
     Dates: start: 20150804, end: 20150804

REACTIONS (12)
  - Liver abscess [Recovered/Resolved]
  - Cholestasis [Recovered/Resolved]
  - Cholelithiasis [Recovered/Resolved with Sequelae]
  - Gastritis [Unknown]
  - Hypertensive crisis [Recovered/Resolved]
  - Hypokalaemia [Recovered/Resolved]
  - Colon adenoma [Unknown]
  - Bile duct stone [Recovered/Resolved]
  - Gastritis erosive [Recovered/Resolved with Sequelae]
  - Cholecystitis [Recovered/Resolved]
  - Bile duct stone [Recovered/Resolved]
  - Uterine cancer [Not Recovered/Not Resolved]

NARRATIVE: CASE EVENT DATE: 20160526
